FAERS Safety Report 20340718 (Version 1)
Quarter: 2022Q1

REPORT INFORMATION
  Report Type: Spontaneous
  Country: IN (occurrence: IN)
  Receive Date: 20220117
  Receipt Date: 20220117
  Transmission Date: 20220423
  Serious: Yes (Death)
  Sender: FDA-Public Use
  Company Number: IN-PFIZER INC-2020121049

PATIENT
  Age: 75 Year
  Sex: Male

DRUGS (1)
  1. SUTENT [Suspect]
     Active Substance: SUNITINIB MALATE
     Indication: Metastatic renal cell carcinoma
     Dosage: 37.5 MG, CYCLIC (ONCE A DAY 4WEEKS ON AND 2 WEEKS OFF)
     Route: 048
     Dates: start: 20200423, end: 20210311

REACTIONS (1)
  - Death [Fatal]

NARRATIVE: CASE EVENT DATE: 20210311
